FAERS Safety Report 19257262 (Version 3)
Quarter: 2021Q2

REPORT INFORMATION
  Report Type: Report from Study
  Country: DE (occurrence: DE)
  Receive Date: 20210513
  Receipt Date: 20210526
  Transmission Date: 20210717
  Serious: Yes (Hospitalization)
  Sender: FDA-Public Use
  Company Number: DE-JNJFOC-20210512395

PATIENT
  Age: 24 Year
  Sex: Male
  Weight: 67.7 kg

DRUGS (2)
  1. GUSELKUMAB [Suspect]
     Active Substance: GUSELKUMAB
  2. GUSELKUMAB [Suspect]
     Active Substance: GUSELKUMAB
     Indication: PSORIASIS
     Dosage: MET KIT NUMBER 42667
     Route: 042
     Dates: start: 20210422, end: 20210422

REACTIONS (1)
  - Gastrooesophageal reflux disease [Recovering/Resolving]

NARRATIVE: CASE EVENT DATE: 20210430
